FAERS Safety Report 4273704-1 (Version None)
Quarter: 2004Q1

REPORT INFORMATION
  Report Type: 
  Country: None (occurrence: None)
  Receive Date: 20040119
  Receipt Date: 20040109
  Transmission Date: 20041129
  Serious: Yes (Hospitalization)
  Sender: FDA-Public Use
  Company Number: FR-ROCHE-355455

PATIENT
  Age: 36 Year
  Sex: Male

DRUGS (2)
  1. HYPNOVEL [Suspect]
     Indication: DRUG USE FOR UNKNOWN INDICATION
     Dosage: FORM REPORTED AS INECTABLE SOLUTION.
     Route: 055
  2. ATROPINE [Suspect]
     Indication: DRUG USE FOR UNKNOWN INDICATION
     Dosage: 0.5MG AT LOT.
     Route: 065

REACTIONS (2)
  - PICKWICKIAN SYNDROME [None]
  - RESPIRATORY FAILURE [None]
